FAERS Safety Report 5898788-6 (Version None)
Quarter: 2008Q3

REPORT INFORMATION
  Report Type: 
  Country: None (occurrence: None)
  Receive Date: 20080925
  Receipt Date: 20080616
  Transmission Date: 20090109
  Serious: No
  Sender: FDA-Public Use
  Company Number: A0733132A

PATIENT
  Age: 60 Year
  Sex: Female

DRUGS (6)
  1. BUPROPION HYDROCHLORIDE [Suspect]
     Indication: DEPRESSION
     Dosage: 300MG PER DAY
     Route: 048
     Dates: start: 20070601, end: 20080606
  2. BUPROPION HYDROCHLORIDE [Suspect]
     Route: 048
     Dates: start: 20080606
  3. LEXAPRO [Suspect]
     Indication: DEPRESSION
     Dosage: 20MG PER DAY
  4. LEXAPRO [Concomitant]
  5. THYROID MEDICATION [Concomitant]
  6. LORAZEPAM [Concomitant]

REACTIONS (5)
  - ANXIETY [None]
  - DEPRESSION [None]
  - MEDICATION RESIDUE [None]
  - NERVOUSNESS [None]
  - PHARMACEUTICAL PRODUCT COMPLAINT [None]
